FAERS Safety Report 24632202 (Version 1)
Quarter: 2024Q4

REPORT INFORMATION
  Report Type: Spontaneous
  Country: CA (occurrence: CA)
  Receive Date: 20241118
  Receipt Date: 20241118
  Transmission Date: 20250114
  Serious: Yes (Hospitalization)
  Sender: ReacX Pharmaceuticals
  Company Number: CA-REACX PHARMACEUTICALS-2024RCX00135

PATIENT
  Age: 54 Year
  Sex: Male

DRUGS (7)
  1. BUPRENORPHINE\NALOXONE [Suspect]
     Active Substance: BUPRENORPHINE\NALOXONE
     Indication: Drug dependence
     Dosage: UNK
  2. CITALOPRAM [Suspect]
     Active Substance: CITALOPRAM
     Dosage: 40 MG, 1X/DAY
  3. QUETIAPINE [Suspect]
     Active Substance: QUETIAPINE
     Dosage: 400 MG, 1X/DAY
  4. ARIPIPRAZOLE [Suspect]
     Active Substance: ARIPIPRAZOLE
     Dosage: 10 MG, 1X/DAY
  5. DULOXETINE [Suspect]
     Active Substance: DULOXETINE
     Dosage: 120 MG, 1X/DAY
  6. ZOPICLONE [Suspect]
     Active Substance: ZOPICLONE
     Dosage: 7.5 MG, 1X/DAY
  7. MIRTAZAPINE [Suspect]
     Active Substance: MIRTAZAPINE
     Dosage: 30 MG, 1X/DAY

REACTIONS (3)
  - Dementia [Recovered/Resolved]
  - Drug abuse [Recovered/Resolved]
  - Multiple drug therapy [Recovered/Resolved]
